FAERS Safety Report 20081867 (Version 1)
Quarter: 2021Q4

REPORT INFORMATION
  Report Type: Spontaneous
  Country: US (occurrence: US)
  Receive Date: 20211117
  Receipt Date: 20211117
  Transmission Date: 20220304
  Serious: Yes (Other)
  Sender: FDA-Public Use
  Company Number: US-REGENERON PHARMACEUTICALS, INC.-2021-100778

PATIENT

DRUGS (1)
  1. EYLEA [Suspect]
     Active Substance: AFLIBERCEPT
     Indication: Macular degeneration
     Dosage: EXTENDED TO EVERY 12 WEEKS

REACTIONS (3)
  - Dementia Alzheimer^s type [Unknown]
  - Agitation [Unknown]
  - Refusal of treatment by patient [Unknown]
